FAERS Safety Report 7762028-3 (Version None)
Quarter: 2011Q3

REPORT INFORMATION
  Report Type: 
  Country: None (occurrence: None)
  Receive Date: 20110920
  Receipt Date: 20110912
  Transmission Date: 20111222
  Serious: Yes (Other)
  Sender: FDA-Public Use
  Company Number: US-ASTRAZENECA-2011SE51125

PATIENT
  Age: 83 Year
  Sex: Female

DRUGS (4)
  1. TRAVATAN [Concomitant]
  2. ATACAND [Suspect]
     Route: 048
  3. VITAMIN TAB [Concomitant]
  4. COUMADIN [Concomitant]

REACTIONS (4)
  - CATARACT [None]
  - TRANSIENT ISCHAEMIC ATTACK [None]
  - GLAUCOMA [None]
  - HYPERPARATHYROIDISM [None]
